FAERS Safety Report 14970260 (Version 2)
Quarter: 2018Q3

REPORT INFORMATION
  Report Type: Spontaneous
  Country: US (occurrence: US)
  Receive Date: 20180604
  Receipt Date: 20180925
  Transmission Date: 20181010
  Serious: No
  Sender: FDA-Public Use
  Company Number: US-VIFOR (INTERNATIONAL) INC.-VIT-2018-04631

PATIENT
  Age: 53 Year
  Sex: Male

DRUGS (9)
  1. TORSEMIDE. [Concomitant]
     Active Substance: TORSEMIDE
  2. VELTASSA [Suspect]
     Active Substance: PATIROMER
     Indication: HYPERKALAEMIA
     Dosage: 1 PACKET DAILY
     Route: 048
     Dates: start: 20160521
  3. LOSARTAN POTASSIUM. [Concomitant]
     Active Substance: LOSARTAN POTASSIUM
  4. PENTOXIFYLLINE. [Concomitant]
     Active Substance: PENTOXIFYLLINE
  5. CARVEDILOL. [Concomitant]
     Active Substance: CARVEDILOL
  6. ATORVASTATIN CALCIUM. [Concomitant]
     Active Substance: ATORVASTATIN CALCIUM
  7. SPIRONOLACTONE. [Concomitant]
     Active Substance: SPIRONOLACTONE
  8. NEPHPLEX RX [Concomitant]
     Active Substance: ASCORBIC ACID\BIOTIN\COBALAMIN\FOLIC ACID\NIACINAMIDE\PANTOTHENIC ACID\PYRIDOXINE HYDROCHLORIDE\RIBOFLAVIN\THIAMINE\ZINC OXIDE
  9. ALLOPURINOL. [Concomitant]
     Active Substance: ALLOPURINOL

REACTIONS (2)
  - Drug dose omission [Unknown]
  - Blood potassium increased [Unknown]

NARRATIVE: CASE EVENT DATE: 20180920
